FAERS Safety Report 8185297-7 (Version None)
Quarter: 2012Q1

REPORT INFORMATION
  Report Type: 
  Country: None (occurrence: None)
  Receive Date: 20120305
  Receipt Date: 20120227
  Transmission Date: 20120608
  Serious: Yes (Other)
  Sender: FDA-Public Use
  Company Number: PHFR2012GB001410

PATIENT
  Sex: Male

DRUGS (1)
  1. CLOZARIL [Suspect]
     Indication: SCHIZOPHRENIA
     Dosage: 275 MG MORNING AND 600 MG AT NIGHT (9:30 PM)
     Route: 048
     Dates: start: 20000829

REACTIONS (1)
  - INCORRECT DOSE ADMINISTERED [None]
